FAERS Safety Report 4853680-0 (Version None)
Quarter: 2005Q4

REPORT INFORMATION
  Report Type: 
  Country: None (occurrence: None)
  Receive Date: 20051212
  Receipt Date: 20051201
  Transmission Date: 20060501
  Serious: Yes (Other)
  Sender: FDA-Public Use
  Company Number: 2005-DE-05266GD

PATIENT
  Sex: Male

DRUGS (7)
  1. MORPHINE [Suspect]
     Indication: PERIOPERATIVE ANALGESIA
     Dosage: 0.1 MG/KG MORPHINE DILUTED IN SALINE 0.2 ML/KG (NR), ED
     Route: 008
  2. THIOPENTHAL (THIOPENTAL) [Concomitant]
  3. ATRACURIUM BESYLATE [Concomitant]
  4. SEVOFLURANE [Concomitant]
  5. NITROUS OXIDE W/ OXYGEN [Concomitant]
  6. IODINE-BASED SOLUTION (IODINE) [Concomitant]
  7. EPINEPHRINE [Concomitant]

REACTIONS (3)
  - OXYGEN SATURATION DECREASED [None]
  - POST PROCEDURAL COMPLICATION [None]
  - RESPIRATORY DEPRESSION [None]
